FAERS Safety Report 6878916-6 (Version None)
Quarter: 2010Q3

REPORT INFORMATION
  Report Type: 
  Country: None (occurrence: None)
  Receive Date: 20100728
  Receipt Date: 20100722
  Transmission Date: 20110219
  Serious: Yes (Life-Threatening, Hospitalization, Other)
  Sender: FDA-Public Use
  Company Number: PHHY2010KR38614

PATIENT
  Sex: Female

DRUGS (22)
  1. ZOLEDRONATE T29581+SOLINF [Suspect]
     Indication: MULTIPLE MYELOMA
     Dosage: 4 MG, UNK
     Dates: start: 20100304
  2. SIGMART [Concomitant]
     Indication: CARDIAC FAILURE CONGESTIVE
     Dosage: UNK
     Route: 048
  3. COZAAR [Concomitant]
     Dosage: UNK
     Route: 048
  4. DIGOXIN [Concomitant]
     Dosage: UNK
     Route: 048
  5. ASPIRIN [Concomitant]
     Dosage: UNK
     Route: 048
  6. ISOSORBIDE DINITRATE [Concomitant]
     Indication: CARDIAC FAILURE CONGESTIVE
     Dosage: UNK
  7. EFFEXOR [Concomitant]
     Dosage: UNK
     Route: 048
     Dates: start: 20090414
  8. SEROQUEL [Concomitant]
     Dosage: UNK
     Route: 048
     Dates: start: 20091114
  9. CLONAZEPAM [Concomitant]
     Dosage: UNK
     Route: 048
     Dates: start: 20091114, end: 20100322
  10. ADRIAMYCIN + CYCLOPHOSPHAMIDE [Concomitant]
     Dosage: UNK
     Dates: start: 20100119, end: 20100304
  11. ZANTAC [Concomitant]
     Dosage: UNK
     Dates: start: 20100104, end: 20100304
  12. BARACLUDE [Concomitant]
     Dosage: UNK
     Route: 048
     Dates: start: 20090507
  13. DEXAMETHASONE [Concomitant]
     Dosage: UNK
     Route: 048
     Dates: start: 20091228, end: 20100304
  14. DEXAMETHASONE [Concomitant]
     Dosage: UNK
     Route: 042
     Dates: start: 20091120, end: 20100304
  15. EMEND [Concomitant]
     Dosage: 80 MG
     Route: 048
     Dates: start: 20100119, end: 20100304
  16. EMEND [Concomitant]
     Dosage: 125 MG
     Route: 048
     Dates: start: 20100119, end: 20100304
  17. ALOXI [Concomitant]
     Dosage: UNK
     Route: 042
     Dates: start: 20100119, end: 20100304
  18. ALBUMIN (HUMAN) [Concomitant]
     Indication: HYPOALBUMINAEMIA
     Dosage: UNK
     Route: 042
     Dates: start: 20091120
  19. LASIX [Concomitant]
     Indication: CHEST PAIN
     Dosage: UNK
     Route: 048
     Dates: start: 20040112
  20. LEGALON [Concomitant]
     Indication: ASPARTATE AMINOTRANSFERASE INCREASED
     Dosage: UNK
     Route: 048
     Dates: start: 20090508, end: 20100325
  21. ALDACTONE [Concomitant]
     Indication: CHEST PAIN
     Dosage: UNK
     Route: 048
     Dates: start: 20100217
  22. PHENIRAMINE [Concomitant]
     Dosage: UNK
     Route: 042
     Dates: start: 20091113, end: 20100311

REACTIONS (14)
  - ABDOMINAL PAIN UPPER [None]
  - ANAL FISSURE [None]
  - ANXIETY [None]
  - BLOOD CALCIUM DECREASED [None]
  - CHEST PAIN [None]
  - DYSPNOEA [None]
  - HAEMORRHOIDS [None]
  - HYPERGLYCAEMIA [None]
  - HYPOTENSION [None]
  - NEUTROPENIA [None]
  - PROCTALGIA [None]
  - PYREXIA [None]
  - SEPSIS [None]
  - WHITE BLOOD CELL COUNT DECREASED [None]
